FAERS Safety Report 6485177-9 (Version None)
Quarter: 2009Q4

REPORT INFORMATION
  Report Type: 
  Country: None (occurrence: None)
  Receive Date: 20091209
  Receipt Date: 20090615
  Transmission Date: 20100525
  Serious: No
  Sender: FDA-Public Use
  Company Number: US-AMGEN-KDL351694

PATIENT
  Sex: Female

DRUGS (11)
  1. ENBREL [Suspect]
     Indication: RHEUMATOID ARTHRITIS
     Route: 058
     Dates: start: 20070623
  2. GLYBURIDE [Concomitant]
  3. HUMULIN R [Concomitant]
  4. PREDNISONE [Concomitant]
     Route: 048
  5. TENORMIN [Concomitant]
  6. COSOPT [Concomitant]
  7. LUMIGAN [Concomitant]
  8. PILOCARPINE HYDROCHLORIDE [Concomitant]
  9. PROPINE [Concomitant]
  10. AVALIDE [Concomitant]
  11. LANTUS [Concomitant]

REACTIONS (5)
  - FATIGUE [None]
  - OSTEOARTHRITIS [None]
  - PLATELET COUNT DECREASED [None]
  - RHEUMATOID ARTHRITIS [None]
  - TOOTH ABSCESS [None]
